FAERS Safety Report 12467168 (Version 1)
Quarter: 2016Q2

REPORT INFORMATION
  Report Type: Spontaneous
  Country: US (occurrence: None)
  Receive Date: 20160614
  Receipt Date: 20160614
  Transmission Date: 20160815
  Serious: No
  Sender: FDA-Public Use
  Company Number: None

PATIENT

DRUGS (2)
  1. CLOPIDOGREL BISULFATE CLOPIDOGRELSUN PHARMACEUTICAL INDUSTRIES LIMITED [Suspect]
     Active Substance: CLOPIDOGREL BISULFATE
  2. ELIQUIS [Suspect]
     Active Substance: APIXABAN

REACTIONS (2)
  - Drug dispensing error [None]
  - Wrong drug administered [None]
